FAERS Safety Report 5147865-6 (Version None)
Quarter: 2006Q4

REPORT INFORMATION
  Report Type: 
  Country: None (occurrence: None)
  Receive Date: 20061106
  Receipt Date: 20061025
  Transmission Date: 20070319
  Serious: Yes (Hospitalization)
  Sender: FDA-Public Use
  Company Number: TPA2006A01502

PATIENT
  Age: 71 Year
  Sex: Male
  Weight: 93.8 kg

DRUGS (8)
  1. PIOGLITAZONE HCL [Suspect]
     Indication: GLUCOSE TOLERANCE TEST ABNORMAL
     Dosage: UNK., 1 IN 1 D, PER ORAL
     Route: 048
     Dates: start: 20050810
  2. LOPRESSOR [Concomitant]
  3. LOVASTATIN [Concomitant]
  4. CLOPIDOGREL BISULFATE (CLOPIDOGREL SULFATE) (75 MILLIGRAM) [Concomitant]
  5. MULTIVITAMIN [Concomitant]
  6. FISH OIL (FISH OIL)(1000 MILLIGRAM) [Concomitant]
  7. FOLBEE (ALL OTHER THERAPEUTIC PRODUCTS) [Concomitant]
  8. ENALAPRIL (ENALAPRIL) (2.5 MILLIGRAM) [Concomitant]

REACTIONS (2)
  - CARDIAC STRESS TEST ABNORMAL [None]
  - ELECTROCARDIOGRAM ST SEGMENT ABNORMAL [None]
